FAERS Safety Report 15578656 (Version 3)
Quarter: 2018Q4

REPORT INFORMATION
  Report Type: Spontaneous
  Country: US (occurrence: US)
  Receive Date: 20181102
  Receipt Date: 20181106
  Transmission Date: 20190205
  Serious: Yes (Hospitalization, Other)
  Sender: FDA-Public Use
  Company Number: US-ENDO PHARMACEUTICALS INC-2018-042601

PATIENT
  Sex: Male
  Weight: 62.6 kg

DRUGS (2)
  1. PREDNISONE TABLETS [Suspect]
     Active Substance: PREDNISONE
     Indication: RHEUMATOID ARTHRITIS
     Dosage: 10 MG, OD
     Route: 065
     Dates: start: 2001
  2. METFORMIN [Concomitant]
     Active Substance: METFORMIN HYDROCHLORIDE
     Indication: DIABETES MELLITUS
     Dosage: 1000 MG (2 TABLETS OF 500 MG EACH PER DAY), DAILY
     Route: 048

REACTIONS (4)
  - Osteoporosis [Unknown]
  - Deep vein thrombosis [Unknown]
  - Intervertebral disc compression [Unknown]
  - Pulmonary embolism [Unknown]
